FAERS Safety Report 8853960 (Version 1)
Quarter: 2012Q4

REPORT INFORMATION
  Report Type: 
  Country: US (occurrence: US)
  Receive Date: 20121022
  Receipt Date: 20121022
  Transmission Date: 20130627
  Serious: Yes (Hospitalization)
  Sender: FDA-Public Use
  Company Number: US-BAYER-2012-106964

PATIENT
  Age: 30 Year
  Sex: Female

DRUGS (8)
  1. OCELLA [Suspect]
  2. LYRICA [Concomitant]
  3. TOPAMAX [Concomitant]
  4. ULTRAM ER [Concomitant]
  5. NORCO [Concomitant]
  6. NORFLEX [Concomitant]
  7. ANTIBIOTICS [Concomitant]
     Indication: PULMONARY CONGESTION
  8. LEVAQUIN [Concomitant]
     Indication: PNEUMONIA
     Route: 041

REACTIONS (1)
  - Pulmonary embolism [Recovered/Resolved]
